FAERS Safety Report 10974851 (Version 1)
Quarter: 2015Q2

REPORT INFORMATION
  Report Type: Spontaneous
  Country: FR (occurrence: FR)
  Receive Date: 20150401
  Receipt Date: 20150401
  Transmission Date: 20150821
  Serious: Yes (Death, Hospitalization, Other)
  Sender: FDA-Public Use
  Company Number: FR-ELI_LILLY_AND_COMPANY-FR201503009117

PATIENT
  Age: 62 Year
  Sex: Male

DRUGS (2)
  1. GEMZAR [Suspect]
     Active Substance: GEMCITABINE HYDROCHLORIDE
     Indication: BLADDER CANCER
     Dosage: UNK UNK, UNKNOWN
     Route: 042
     Dates: start: 20141208, end: 20141222
  2. CISPLATIN. [Suspect]
     Active Substance: CISPLATIN
     Indication: BLADDER CANCER
     Dosage: UNK, UNKNOWN
     Route: 042
     Dates: start: 20141208, end: 20141222

REACTIONS (21)
  - Loss of consciousness [Recovered/Resolved]
  - Bone lesion [Unknown]
  - Bone marrow failure [Fatal]
  - Acute kidney injury [Unknown]
  - Hypotension [Unknown]
  - Duodenal ulcer [Unknown]
  - Blood pressure abnormal [Unknown]
  - Oesophagitis [Unknown]
  - Biliary cyst [Unknown]
  - Dizziness [Unknown]
  - Sepsis [Unknown]
  - Gastroduodenitis [Unknown]
  - Tachycardia [Unknown]
  - Haemangioma of liver [Unknown]
  - Colitis ischaemic [Unknown]
  - Thrombocytopenia [Unknown]
  - Anaemia [Unknown]
  - Atrial fibrillation [Unknown]
  - Thyroid neoplasm [Unknown]
  - Oxygen saturation decreased [Recovered/Resolved]
  - Gastric polyps [Unknown]

NARRATIVE: CASE EVENT DATE: 20141220
